FAERS Safety Report 9529431 (Version 2)
Quarter: 2013Q3

REPORT INFORMATION
  Report Type: Spontaneous
  Country: FR (occurrence: FR)
  Receive Date: 20130917
  Receipt Date: 20130917
  Transmission Date: 20140515
  Serious: Yes (Hospitalization)
  Sender: FDA-Public Use
  Company Number: FR-PFIZER INC-FR-WYE-G04882109

PATIENT
  Age: 77 Year
  Sex: Male

DRUGS (4)
  1. TAZOCILLINE [Suspect]
     Indication: LUNG INFECTION
     Dosage: 4G/500 MG THREE UNITS DAILY
     Route: 042
     Dates: start: 20090530, end: 20090601
  2. TYGACIL [Suspect]
     Indication: LUNG INFECTION
     Dosage: 50 MG, 2X/DAY
     Route: 042
     Dates: start: 20090601, end: 20090605
  3. VANCOMYCIN HCL [Suspect]
     Indication: SKIN INFECTION
     Dosage: 750 MG/DAY
     Route: 042
     Dates: start: 20090522, end: 20090524
  4. BACTRIM [Suspect]
     Indication: SKIN INFECTION
     Dosage: UNK
     Dates: start: 20090520, end: 20090522

REACTIONS (4)
  - Dermatitis exfoliative [Recovered/Resolved]
  - Rash maculo-papular [Recovered/Resolved]
  - Eczema [Recovered/Resolved]
  - Urticaria [Recovered/Resolved]
